FAERS Safety Report 5373663-4 (Version None)
Quarter: 2007Q2

REPORT INFORMATION
  Report Type: 
  Country: None (occurrence: None)
  Receive Date: 20070615
  Receipt Date: 20060606
  Transmission Date: 20071010
  Serious: Yes (Other)
  Sender: FDA-Public Use
  Company Number: 200518805US

PATIENT
  Age: 68 Year
  Sex: Male

DRUGS (9)
  1. LANTUS [Suspect]
     Indication: DIABETES MELLITUS NON-INSULIN-DEPENDENT
     Dosage: 10 U INJ
     Dates: start: 20051018
  2. INSULIN [Suspect]
     Indication: DIABETES MELLITUS NON-INSULIN-DEPENDENT
     Dates: start: 20051018
  3. WARFARIN SODIUM [Concomitant]
  4. AMITRIPTYLINE HCL [Concomitant]
  5. PRAVASTATIN SODIUM (PRAVACHOL) [Concomitant]
  6. OXYCODONE HYDROCHLORIDE (OXYCONTIN) [Concomitant]
  7. FERROUS SULFATE [Concomitant]
  8. SERTRALINE (ZOLOFT /01011401/) [Concomitant]
  9. METFORMIN HCL [Concomitant]

REACTIONS (1)
  - HYPERGLYCAEMIA [None]
